FAERS Safety Report 5955349-8 (Version None)
Quarter: 2008Q4

REPORT INFORMATION
  Report Type: 
  Country: None (occurrence: None)
  Receive Date: 20081117
  Receipt Date: 20081110
  Transmission Date: 20090506
  Serious: Yes (Other)
  Sender: FDA-Public Use
  Company Number: JP-AVENTIS-200812972JP

PATIENT
  Sex: Female

DRUGS (2)
  1. AMARYL [Suspect]
     Route: 048
     Dates: start: 20080507, end: 20080821
  2. MELBIN                             /00082702/ [Concomitant]
     Route: 048

REACTIONS (1)
  - DYSARTHRIA [None]
